FAERS Safety Report 9680028 (Version 3)
Quarter: 2013Q4

REPORT INFORMATION
  Report Type: Spontaneous
  Country: US (occurrence: US)
  Receive Date: 20131110
  Receipt Date: 20131226
  Transmission Date: 20140711
  Serious: Yes (Hospitalization)
  Sender: FDA-Public Use
  Company Number: US-SANOFI-AVENTIS-2013SA093616

PATIENT
  Age: 59 Year
  Sex: Female

DRUGS (2)
  1. KYNAMRO [Suspect]
     Indication: TYPE IIA HYPERLIPIDAEMIA
     Route: 065
     Dates: start: 20130829, end: 201311
  2. KYNAMRO [Suspect]
     Indication: TYPE IIA HYPERLIPIDAEMIA
     Route: 065
     Dates: end: 20131216

REACTIONS (7)
  - Spinal operation [Unknown]
  - Myalgia [Unknown]
  - Pain [Unknown]
  - Injection site reaction [Unknown]
  - Blood pressure increased [Unknown]
  - Blood glucose increased [Unknown]
  - Drug dose omission [Unknown]
